FAERS Safety Report 8935496 (Version 1)
Quarter: 2012Q4

REPORT INFORMATION
  Report Type: Spontaneous
  Country: US (occurrence: None)
  Receive Date: 20121128
  Receipt Date: 20121128
  Transmission Date: 20130627
  Serious: Yes (Hospitalization)
  Sender: FDA-Public Use
  Company Number: None

PATIENT
  Age: 70 Year
  Sex: Female
  Weight: 65.8 kg

DRUGS (1)
  1. RECLAST 5 MG/100ML [Suspect]
     Indication: OSTEOPOROSIS
     Dosage: 5mg once IV bolus
     Route: 040

REACTIONS (9)
  - Dizziness [None]
  - Hyperhidrosis [None]
  - Syncope [None]
  - Asthenia [None]
  - Pallor [None]
  - Depressed level of consciousness [None]
  - Heart rate decreased [None]
  - Feeling abnormal [None]
  - Transfusion reaction [None]
